FAERS Safety Report 14785249 (Version 7)
Quarter: 2020Q2

REPORT INFORMATION
  Report Type: Report from Study
  Country: CA (occurrence: CA)
  Receive Date: 20180420
  Receipt Date: 20200423
  Transmission Date: 20200713
  Serious: Yes (Other)
  Sender: FDA-Public Use
  Company Number: CA-ROCHE-1876509

PATIENT
  Age: 44 Year
  Sex: Female
  Weight: 120 kg

DRUGS (17)
  1. ACTEMRA [Suspect]
     Active Substance: TOCILIZUMAB
     Indication: RHEUMATOID ARTHRITIS
     Route: 042
     Dates: start: 20120208
  2. ACTEMRA [Suspect]
     Active Substance: TOCILIZUMAB
     Dosage: 71TH INFUSION
     Route: 042
     Dates: start: 20171129
  3. METHOTREXATE. [Concomitant]
     Active Substance: METHOTREXATE
  4. MARVELON [Concomitant]
     Active Substance: DESOGESTREL\ETHINYL ESTRADIOL
  5. CLINDAMYCIN. [Concomitant]
     Active Substance: CLINDAMYCIN
  6. OMEGA 3 [DOCOSAHEXAENOIC ACID;EICOSAPENTAENOIC ACID] [Concomitant]
     Active Substance: DOCONEXENT\ICOSAPENT
  7. ACTEMRA [Suspect]
     Active Substance: TOCILIZUMAB
     Dosage: 73  INFUSION
     Route: 042
     Dates: start: 20180131
  8. ACTEMRA [Suspect]
     Active Substance: TOCILIZUMAB
     Dosage: 65TH INFUSION
     Route: 042
     Dates: start: 20170601
  9. ACTEMRA [Suspect]
     Active Substance: TOCILIZUMAB
     Dosage: INFUSION NUMBER 75
     Route: 042
     Dates: start: 20180322
  10. CELEBREX [Concomitant]
     Active Substance: CELECOXIB
  11. TYLENOL WITH CODEINE [Concomitant]
     Active Substance: ACETAMINOPHEN\CODEINE PHOSPHATE
  12. ACTEMRA [Suspect]
     Active Substance: TOCILIZUMAB
     Dosage: 70TH INFUSION
     Route: 042
     Dates: start: 20171024
  13. EPIVAL [VALPROATE SEMISODIUM] [Concomitant]
  14. VITAMIN C [Concomitant]
     Active Substance: ASCORBIC ACID
  15. ACTEMRA [Suspect]
     Active Substance: TOCILIZUMAB
     Route: 042
     Dates: start: 20180718
  16. VICTOZA [Concomitant]
     Active Substance: LIRAGLUTIDE
     Indication: WEIGHT DECREASED
     Dosage: ON DRUG FOR 1 MONTH FOR WEIGHT LOSS
     Route: 065
  17. ACTEMRA [Suspect]
     Active Substance: TOCILIZUMAB
     Dosage: 72  INFUSION
     Route: 042
     Dates: start: 20171229

REACTIONS (22)
  - Contusion [Not Recovered/Not Resolved]
  - Cough [Unknown]
  - Blood glucose increased [Unknown]
  - Road traffic accident [Unknown]
  - Musculoskeletal stiffness [Not Recovered/Not Resolved]
  - Wrist fracture [Unknown]
  - Disability assessment scale score increased [Not Recovered/Not Resolved]
  - Fatigue [Recovering/Resolving]
  - Ocular hyperaemia [Unknown]
  - Eye irritation [Unknown]
  - Hidradenitis [Unknown]
  - Eye infection [Recovered/Resolved]
  - Lower respiratory tract infection [Recovering/Resolving]
  - Skin ulcer [Recovered/Resolved]
  - Sinusitis [Recovered/Resolved]
  - Nasopharyngitis [Recovered/Resolved]
  - Post-traumatic neck syndrome [Not Recovered/Not Resolved]
  - Bronchitis [Recovered/Resolved]
  - Aphonia [Not Recovered/Not Resolved]
  - Nasal congestion [Not Recovered/Not Resolved]
  - Eye pain [Recovered/Resolved]
  - Oxygen saturation decreased [Unknown]

NARRATIVE: CASE EVENT DATE: 2016
